FAERS Safety Report 9012806 (Version 1)
Quarter: 2013Q1

REPORT INFORMATION
  Report Type: Spontaneous
  Country: US (occurrence: US)
  Receive Date: 20130114
  Receipt Date: 20130114
  Transmission Date: 20140127
  Serious: No
  Sender: FDA-Public Use
  Company Number: US-009507513-1301USA004593

PATIENT
  Sex: Male

DRUGS (1)
  1. PROVENTIL [Suspect]
     Dosage: 2 DF, PRN, ORAL INHALATION
     Route: 055
     Dates: start: 201212

REACTIONS (2)
  - Dyspnoea [Recovering/Resolving]
  - Malaise [Recovering/Resolving]
